FAERS Safety Report 5809705-9 (Version None)
Quarter: 2008Q3

REPORT INFORMATION
  Report Type: 
  Country: None (occurrence: None)
  Receive Date: 20080711
  Receipt Date: 20080711
  Transmission Date: 20090109
  Serious: Yes (Other)
  Sender: FDA-Public Use
  Company Number: None

PATIENT
  Age: 51 Year
  Sex: Female
  Weight: 70.3075 kg

DRUGS (1)
  1. COPAXONE [Suspect]
     Indication: MULTIPLE SCLEROSIS
     Dosage: 20 MG DAILY SQ
     Route: 058
     Dates: start: 20060424, end: 20080710

REACTIONS (24)
  - ANGER [None]
  - COLD SWEAT [None]
  - CONTUSION [None]
  - DIZZINESS [None]
  - FEELING ABNORMAL [None]
  - FEELING HOT [None]
  - FRUSTRATION [None]
  - GASTRIC DISORDER [None]
  - HYPERAESTHESIA [None]
  - INFECTION [None]
  - INJECTION SITE DISCOLOURATION [None]
  - INJECTION SITE ERYTHEMA [None]
  - MEDICAL DEVICE COMPLICATION [None]
  - NAUSEA [None]
  - PAIN [None]
  - PAIN OF SKIN [None]
  - PRURITUS [None]
  - PYREXIA [None]
  - RASH [None]
  - SCAB [None]
  - SKIN BURNING SENSATION [None]
  - SKIN SWELLING [None]
  - THERAPEUTIC PRODUCT CONTAMINATION [None]
  - VISUAL IMPAIRMENT [None]
